FAERS Safety Report 8260734-8 (Version None)
Quarter: 2012Q2

REPORT INFORMATION
  Report Type: 
  Country: None (occurrence: None)
  Receive Date: 20120405
  Receipt Date: 20120327
  Transmission Date: 20120825
  Serious: Yes (Hospitalization)
  Sender: FDA-Public Use
  Company Number: US-BIOGENIDEC-2012BI008743

PATIENT
  Age: 46 Year
  Sex: Female

DRUGS (1)
  1. AVONEX [Suspect]
     Indication: MULTIPLE SCLEROSIS
     Route: 030
     Dates: start: 19981230

REACTIONS (8)
  - STRESS [None]
  - PNEUMONIA [None]
  - PYREXIA [None]
  - NERVOUSNESS [None]
  - MULTIPLE SCLEROSIS RELAPSE [None]
  - DIABETES MELLITUS [None]
  - INFLUENZA LIKE ILLNESS [None]
  - FEELING ABNORMAL [None]
